FAERS Safety Report 6189867-7 (Version None)
Quarter: 2009Q2

REPORT INFORMATION
  Report Type: 
  Country: None (occurrence: None)
  Receive Date: 20090514
  Receipt Date: 20071226
  Transmission Date: 20091009
  Serious: Yes (Other)
  Sender: FDA-Public Use
  Company Number: US-ASTRAZENECA-2007UW05717

PATIENT
  Age: 50 Year
  Sex: Female

DRUGS (18)
  1. SEROQUEL [Suspect]
     Indication: SLEEP DISORDER
     Route: 048
     Dates: start: 19990601
  2. SEROQUEL [Suspect]
     Route: 048
     Dates: start: 19990101, end: 20070607
  3. RISPERDAL [Concomitant]
     Route: 065
     Dates: start: 19980323
  4. CYMBALTA [Concomitant]
     Indication: AFFECTIVE DISORDER
     Route: 065
  5. CYMBALTA [Concomitant]
     Indication: PAIN
     Route: 065
  6. HALOPERIDOL [Concomitant]
     Indication: HALLUCINATION, AUDITORY
     Dosage: 1 MG IN THE AM AND 3 MG HS, 1 MG TID, INCREASE TO 5 MG QAM AND 1 MG HS, 1 MS HALF TAB BID
     Route: 048
  7. HALOPERIDOL [Concomitant]
     Indication: PARANOIA
     Dosage: 1 MG IN THE AM AND 3 MG HS, 1 MG TID, INCREASE TO 5 MG QAM AND 1 MG HS, 1 MS HALF TAB BID
     Route: 048
  8. HALOPERIDOL [Concomitant]
     Indication: HALLUCINATION, VISUAL
     Dosage: 1 MG IN THE AM AND 3 MG HS, 1 MG TID, INCREASE TO 5 MG QAM AND 1 MG HS, 1 MS HALF TAB BID
     Route: 048
  9. CLONAZEPAM [Concomitant]
     Dosage: 1 MG NOOD AND HS
     Route: 065
  10. PAROXETINE HCL [Concomitant]
     Route: 065
  11. BISOPROLOL FUMARATE AND HYDROCHLOROTHIAZIDE [Concomitant]
     Dosage: 2.5 / 6.25
     Route: 065
  12. ACTOS [Concomitant]
     Route: 065
  13. GLUCOPHAGE [Concomitant]
     Route: 065
  14. LIPITOR [Concomitant]
     Route: 065
  15. MORPHINE [Concomitant]
     Route: 048
  16. OXYCODONE [Concomitant]
     Indication: BREAKTHROUGH PAIN
     Route: 065
  17. PAXIL [Concomitant]
     Route: 065
  18. PREMARIN [Concomitant]
     Route: 065

REACTIONS (11)
  - ANXIETY [None]
  - ARTHRALGIA [None]
  - COLON CANCER [None]
  - DEMENTIA [None]
  - DIPLOPIA [None]
  - HALLUCINATIONS, MIXED [None]
  - MUSCULOSKELETAL PAIN [None]
  - PARANOIA [None]
  - PSYCHOTIC DISORDER [None]
  - SUICIDAL IDEATION [None]
  - TYPE 2 DIABETES MELLITUS [None]
